FAERS Safety Report 6275651-2 (Version None)
Quarter: 2009Q3

REPORT INFORMATION
  Report Type: 
  Country: None (occurrence: None)
  Receive Date: 20090721
  Receipt Date: 20090714
  Transmission Date: 20100115
  Serious: Yes (Other)
  Sender: FDA-Public Use
  Company Number: US-BAYER-200912145BCC

PATIENT
  Age: 57 Year
  Sex: Female
  Weight: 113 kg

DRUGS (3)
  1. ALEVE (CAPLET) [Suspect]
     Indication: ARTHRITIS
     Dosage: UNIT DOSE: 220 MG
     Route: 048
     Dates: start: 20090601, end: 20090101
  2. TYLENOL (CAPLET) [Concomitant]
     Indication: ARTHRALGIA
     Dosage: CONSUMER STARTED 5-7 DAYS AGO TO 13-JUL-2009
     Route: 065
     Dates: start: 20090701, end: 20090713
  3. MEDICATION FOR HIGH BLOOD PRESSURE [Concomitant]
     Indication: HYPERTENSION
     Route: 065

REACTIONS (4)
  - ABDOMINAL PAIN [None]
  - DIARRHOEA [None]
  - HAEMATOCHEZIA [None]
  - VAGINAL HAEMORRHAGE [None]
